FAERS Safety Report 15312773 (Version 2)
Quarter: 2018Q3

REPORT INFORMATION
  Report Type: Report from Study
  Country: FR (occurrence: FR)
  Receive Date: 20180823
  Receipt Date: 20180827
  Transmission Date: 20181010
  Serious: Yes (Life-Threatening, Hospitalization, Other)
  Sender: FDA-Public Use
  Company Number: PHHO2018FR008663

PATIENT
  Age: 10 Year
  Sex: Female
  Weight: 27.5 kg

DRUGS (4)
  1. PAZOPANIB [Suspect]
     Active Substance: PAZOPANIB
     Indication: NEOPLASM
     Dosage: 4.6 ML, QD, 230 MG/DAY, 225 MG/M2/ML/DAY
     Route: 048
     Dates: start: 20180528, end: 20180718
  2. CONTRAMAL [Concomitant]
     Active Substance: TRAMADOL HYDROCHLORIDE
     Indication: HEADACHE
     Dosage: 8 DRP, Q6H
     Route: 065
     Dates: start: 20180601
  3. ZOPHREN [Concomitant]
     Active Substance: ONDANSETRON
     Indication: VOMITING
     Dosage: 4 MG, QW
     Route: 065
     Dates: start: 20180716
  4. DOLIPRANE [Concomitant]
     Active Substance: ACETAMINOPHEN
     Indication: HEADACHE
     Dosage: 300 MG, UNK
     Route: 065
     Dates: start: 20180523

REACTIONS (2)
  - Intracranial pressure increased [Recovered/Resolved]
  - Haemorrhage intracranial [Unknown]

NARRATIVE: CASE EVENT DATE: 20180720
